FAERS Safety Report 15617123 (Version 2)
Quarter: 2018Q4

REPORT INFORMATION
  Report Type: Report from Study
  Country: RU (occurrence: RU)
  Receive Date: 20181114
  Receipt Date: 20181130
  Transmission Date: 20190205
  Serious: Yes (Hospitalization)
  Sender: FDA-Public Use
  Company Number: RU-REGENERON PHARMACEUTICALS, INC.-2018-43917

PATIENT

DRUGS (18)
  1. PANANGIN [Concomitant]
     Active Substance: MAGNESIUM ASPARTATE\POTASSIUM ASPARTATE
     Indication: HYPOKALAEMIA
     Dosage: 1 TABLET, TID
     Route: 048
     Dates: start: 20181025
  2. SPIRONOLACTONE. [Concomitant]
     Active Substance: SPIRONOLACTONE
     Indication: PERIPHERAL SWELLING
     Dosage: 50 MG, BID
     Route: 048
     Dates: start: 20181031
  3. FORTICARE [Concomitant]
     Indication: HYPOPROTEINAEMIA
     Dosage: 400 ML, QD
     Route: 048
     Dates: start: 20181025
  4. LORISTA [Concomitant]
     Active Substance: LOSARTAN POTASSIUM
     Indication: HYPERTENSION
     Dosage: 25 MG, QD
     Route: 048
     Dates: start: 2012
  5. BISOPROLOL [Concomitant]
     Active Substance: BISOPROLOL
     Indication: ELECTROCARDIOGRAM REPOLARISATION ABNORMALITY
     Dosage: 10 MG, QD
     Route: 048
     Dates: start: 20180821, end: 20181105
  6. CEMIPLIMAB [Suspect]
     Active Substance: CEMIPLIMAB
     Indication: NON-SMALL CELL LUNG CANCER STAGE IV
     Dosage: 350 MG, Q3W
     Route: 042
     Dates: start: 20180524, end: 20180731
  7. BISOPROLOL [Concomitant]
     Active Substance: BISOPROLOL
     Indication: HYPERTENSION
     Dosage: 5 MG, QD
     Route: 048
     Dates: start: 2012
  8. PREDUCTAL [Concomitant]
     Active Substance: TRIMETAZIDINE DIHYDROCHLORIDE
     Indication: ELECTROCARDIOGRAM REPOLARISATION ABNORMALITY
     Dosage: 80 MG, QD
     Route: 048
     Dates: start: 20180821
  9. CALCEMIN [Concomitant]
     Active Substance: BORON\PREVITAMIN D3\ZINC
     Indication: HYPOCALCAEMIA
     Dosage: 1 TABLET, TID
     Route: 048
     Dates: start: 20181025
  10. HEPTRAL                            /00882301/ [Concomitant]
     Indication: ALANINE AMINOTRANSFERASE INCREASED
     Dosage: 400 MG, TID
     Route: 048
     Dates: start: 20181010
  11. SIMVASTATIN. [Concomitant]
     Active Substance: SIMVASTATIN
     Indication: MYOCARDIAL ISCHAEMIA
     Dosage: 40 MG, QD
     Route: 048
     Dates: start: 2012
  12. EUTHYROX [Concomitant]
     Active Substance: LEVOTHYROXINE SODIUM
     Dosage: 125 ?G, QD
     Route: 048
     Dates: start: 20181031
  13. DETRALEX [Concomitant]
     Active Substance: DIOSMIN\HESPERIDIN
     Indication: ATHEROSCLEROSIS PROPHYLAXIS
     Dosage: 1000 MG, QD
     Route: 048
     Dates: start: 20180720
  14. EUTHYROX [Concomitant]
     Active Substance: LEVOTHYROXINE SODIUM
     Indication: HYPOTHYROIDISM
     Dosage: 75 ?G, QD
     Route: 048
     Dates: start: 20180822, end: 20180906
  15. CEMIPLIMAB [Suspect]
     Active Substance: CEMIPLIMAB
     Dosage: 350MG, Q3W
     Route: 042
     Dates: start: 20181114
  16. ANGIOVIT                           /00028904/ [Concomitant]
     Indication: ATHEROSCLEROSIS PROPHYLAXIS
     Dosage: 1 TABLET, BID
     Route: 048
     Dates: start: 20180720
  17. AMLODIPINE [Concomitant]
     Active Substance: AMLODIPINE BESYLATE
     Indication: ELECTROCARDIOGRAM REPOLARISATION ABNORMALITY
     Dosage: 5 MG, QD
     Route: 048
     Dates: start: 20180821
  18. EUTHYROX [Concomitant]
     Active Substance: LEVOTHYROXINE SODIUM
     Dosage: 100 ?G, QD
     Route: 048
     Dates: start: 20180907, end: 20181030

REACTIONS (1)
  - Peripheral swelling [Recovered/Resolved]

NARRATIVE: CASE EVENT DATE: 20181106
